FAERS Safety Report 13017106 (Version 1)
Quarter: 2016Q4

REPORT INFORMATION
  Report Type: Spontaneous
  Country: US (occurrence: US)
  Receive Date: 20161208
  Receipt Date: 20161208
  Transmission Date: 20170207
  Serious: Yes (Hospitalization)
  Sender: FDA-Public Use
  Company Number: None

PATIENT
  Age: 50 Year
  Sex: Female

DRUGS (5)
  1. LETROZOLE 2.5MG TAB TEVA [Suspect]
     Active Substance: LETROZOLE
     Route: 048
     Dates: start: 20160726
  2. IBRANCE [Suspect]
     Active Substance: PALBOCICLIB
     Indication: STOMATITIS
     Route: 048
     Dates: start: 20160726
  3. AVASTIN [Concomitant]
     Active Substance: BEVACIZUMAB
  4. MULTI-VIT [Concomitant]
     Active Substance: VITAMINS
  5. LAVANDER [Concomitant]

REACTIONS (1)
  - Hospitalisation [None]

NARRATIVE: CASE EVENT DATE: 201611
